FAERS Safety Report 12622879 (Version 3)
Quarter: 2016Q4

REPORT INFORMATION
  Report Type: Spontaneous
  Country: JP (occurrence: JP)
  Receive Date: 20160804
  Receipt Date: 20161024
  Transmission Date: 20170207
  Serious: No
  Sender: FDA-Public Use
  Company Number: JP-UCBSA-2016025218

PATIENT
  Age: 78 Year
  Sex: Male

DRUGS (2)
  1. NEUPRO [Suspect]
     Active Substance: ROTIGOTINE
     Indication: PARKINSON^S DISEASE
     Dosage: 2 MG, ONCE DAILY (QD)
     Route: 062
  2. NEUPRO [Suspect]
     Active Substance: ROTIGOTINE
     Dosage: 8 MG, DAILY DOSE
     Route: 062
     Dates: start: 201509

REACTIONS (2)
  - Posture abnormal [Recovering/Resolving]
  - Eyelid oedema [Recovering/Resolving]

NARRATIVE: CASE EVENT DATE: 201606
